FAERS Safety Report 7641661-3 (Version None)
Quarter: 2011Q3

REPORT INFORMATION
  Report Type: 
  Country: None (occurrence: None)
  Receive Date: 20110728
  Receipt Date: 20110725
  Transmission Date: 20111222
  Serious: Yes (Other)
  Sender: FDA-Public Use
  Company Number: US-GLAXOSMITHKLINE-A0935342A

PATIENT
  Age: 37 Year
  Sex: Male

DRUGS (2)
  1. PHENYTOIN [Suspect]
     Indication: CONVULSION
     Dosage: 300MG PER DAY
     Route: 065
  2. LAMICTAL [Suspect]
     Indication: CONVULSION
     Route: 048
     Dates: start: 20110627

REACTIONS (4)
  - CONVULSION [None]
  - PARTIAL SEIZURES [None]
  - AURA [None]
  - HEADACHE [None]
